FAERS Safety Report 12471194 (Version 6)
Quarter: 2018Q1

REPORT INFORMATION
  Report Type: Report from Study
  Country: DE (occurrence: DE)
  Receive Date: 20160616
  Receipt Date: 20180227
  Transmission Date: 20180508
  Serious: Yes (Hospitalization)
  Sender: FDA-Public Use
  Company Number: DE-ROCHE-1756888

PATIENT
  Age: 75 Year
  Sex: Male
  Weight: 123 kg

DRUGS (25)
  1. CHLORAMBUCIL [Suspect]
     Active Substance: CHLORAMBUCIL
     Indication: CHRONIC LYMPHOCYTIC LEUKAEMIA
     Dosage: DATE OF MOST RECENT DOSE OF CHLORAMBUCIL PRIOR TO AE ONSET: 19/APR/2016 AT 10:40?DOSE OF LAST CHLORA
     Route: 048
     Dates: start: 20160223
  2. TORASEMID [Concomitant]
     Active Substance: TORSEMIDE
     Indication: HYPERTENSION
     Route: 048
     Dates: start: 20150513
  3. IMODIUM [Concomitant]
     Active Substance: LOPERAMIDE HYDROCHLORIDE
     Indication: DIARRHOEA
     Route: 048
     Dates: start: 20160407, end: 20160407
  4. AMPHO MORONAL [Concomitant]
     Active Substance: AMPHOTERICIN B
     Dosage: DOSE: 1 OTHER
     Route: 048
     Dates: start: 20160516, end: 20160519
  5. PROPOFOL. [Concomitant]
     Active Substance: PROPOFOL
     Dosage: FREQUENCY: OTHER
     Route: 042
     Dates: start: 20160512, end: 20160512
  6. KELTICAN (GERMANY) [Concomitant]
     Indication: FOLATE DEFICIENCY
  7. TAVEGIL [Concomitant]
     Active Substance: CLEMASTINE FUMARATE
     Indication: PREMEDICATION
     Dosage: PRE MEDICATION
     Route: 042
     Dates: start: 20160223, end: 20160419
  8. CLEXANE [Concomitant]
     Active Substance: ENOXAPARIN SODIUM
     Route: 058
     Dates: start: 20160511, end: 20160513
  9. METFORMIN [Concomitant]
     Active Substance: METFORMIN HYDROCHLORIDE
     Indication: DIABETES MELLITUS
     Route: 048
     Dates: start: 20150716
  10. EZETROL [Concomitant]
     Active Substance: EZETIMIBE
     Indication: HYPERCHOLESTEROLAEMIA
     Route: 048
     Dates: start: 20150422
  11. POTASSIUM CHLORIDE. [Concomitant]
     Active Substance: POTASSIUM CHLORIDE
     Dosage: FLUID SUPPLEMENT
     Route: 042
     Dates: start: 20160223, end: 20160419
  12. OBINUTUZUMAB. [Suspect]
     Active Substance: OBINUTUZUMAB
     Indication: CHRONIC LYMPHOCYTIC LEUKAEMIA
     Dosage: DATE OF MOST RECENT DOSE OF OBINUTUZUMAB PRIOR TO AE ONSET: 19/APR/2016 AT 11:00?DOSE OF LAST OBINUT
     Route: 042
     Dates: start: 20160223
  13. KELTICAN (GERMANY) [Concomitant]
     Indication: VITAMIN B COMPLEX DEFICIENCY
     Route: 048
     Dates: start: 20150422
  14. STILNOX [Concomitant]
     Active Substance: ZOLPIDEM TARTRATE
     Indication: SLEEP DISORDER
     Route: 048
     Dates: start: 20160513, end: 20170517
  15. XYLOCAINE [Concomitant]
     Active Substance: LIDOCAINE HYDROCHLORIDE
     Indication: ENDOSCOPY UPPER GASTROINTESTINAL TRACT
     Dosage: FREQUENCY: OTHER
     Route: 054
     Dates: start: 20160511, end: 20160511
  16. TELMISARTAN. [Concomitant]
     Active Substance: TELMISARTAN
     Indication: HYPERTENSION
     Route: 048
     Dates: start: 20150716
  17. ALLOPURINOL. [Concomitant]
     Active Substance: ALLOPURINOL
     Indication: HYPERURICAEMIA
     Route: 048
     Dates: start: 20150513
  18. RANITIDIN [Concomitant]
     Active Substance: RANITIDINE HYDROCHLORIDE
     Indication: PREMEDICATION
     Dosage: PREMEDICATION
     Route: 042
     Dates: start: 20160223
  19. SOLU-DECORTIN H [Concomitant]
     Indication: PREMEDICATION
     Dosage: PREMEDICATION
     Route: 042
     Dates: start: 20160223
  20. ATORVASTATIN [Concomitant]
     Active Substance: ATORVASTATIN
     Indication: HYPERCHOLESTEROLAEMIA
     Route: 048
     Dates: start: 20160511, end: 20160529
  21. PROPOFOL. [Concomitant]
     Active Substance: PROPOFOL
     Indication: COLONOSCOPY
     Dosage: FREQUENCY: OTHER
     Route: 042
     Dates: start: 20160511, end: 20160515
  22. JANUVIA [Concomitant]
     Active Substance: SITAGLIPTIN PHOSPHATE
     Indication: DIABETES MELLITUS
     Route: 048
     Dates: start: 20150513
  23. XARELTO [Concomitant]
     Active Substance: RIVAROXABAN
     Indication: THROMBOSIS PROPHYLAXIS
     Route: 048
     Dates: start: 20150513
  24. PARACETAMOL [Concomitant]
     Active Substance: ACETAMINOPHEN
     Indication: PREMEDICATION
     Dosage: PREMEDICATION
     Route: 048
     Dates: start: 20160223, end: 20160419
  25. PANTOZOL [Concomitant]
     Active Substance: PANTOPRAZOLE SODIUM
     Indication: ECTOPIC GASTRIC MUCOSA
     Route: 048
     Dates: start: 20160513, end: 20160704

REACTIONS (1)
  - Autoimmune haemolytic anaemia [Recovered/Resolved]

NARRATIVE: CASE EVENT DATE: 20160426
